FAERS Safety Report 8005633-1 (Version None)
Quarter: 2011Q4

REPORT INFORMATION
  Report Type: 
  Country: None (occurrence: None)
  Receive Date: 20111223
  Receipt Date: 20111216
  Transmission Date: 20120403
  Serious: Yes (Life-Threatening, Hospitalization)
  Sender: FDA-Public Use
  Company Number: JP-SANOFI-AVENTIS-2011SA078903

PATIENT
  Age: 59 Year
  Sex: Male
  Weight: 46 kg

DRUGS (15)
  1. ENALAPRIL MALEATE [Suspect]
     Route: 048
     Dates: start: 20111117, end: 20111124
  2. LASIX [Suspect]
     Dosage: (75); THERAPY START DATE: 4 OCT (YEAR NOT SPECIFIED)
     Route: 048
     Dates: start: 20111017, end: 20111110
  3. MAGNESIUM OXIDE [Suspect]
     Indication: CONSTIPATION
     Dosage: DOSE: 0.67
     Route: 048
     Dates: start: 20111014, end: 20111110
  4. PLAVIX [Suspect]
     Dosage: THERAPY STARTED: 8 OCT (YEAR NOT SPECIFIED), THERAPY END DATE: 10 NOV (YEAR NOT SPECIFIED)
     Route: 048
     Dates: start: 20111003, end: 20111110
  5. ENALAPRIL MALEATE [Suspect]
     Route: 048
     Dates: start: 20111011, end: 20111110
  6. SENNOSIDE A+B [Suspect]
     Indication: CONSTIPATION
     Dosage: DOSE: 2
     Route: 048
     Dates: start: 20111014, end: 20111110
  7. ALDACTONE [Concomitant]
     Dosage: (25); AFTER BREAKFAST AND LUNCH; THERAPY START DATE: 07 OCT (YEAR NOT SPECIFIED)
  8. ASPIRIN [Suspect]
     Route: 048
     Dates: start: 20111117, end: 20111124
  9. TEPRENONE [Suspect]
     Indication: PROPHYLAXIS
     Route: 048
     Dates: start: 20111013, end: 20111110
  10. WARFARIN [Suspect]
     Indication: CARDIAC DISORDER
     Route: 048
     Dates: start: 20111015, end: 20111110
  11. LASIX [Suspect]
     Dosage: (75); THERAPY START DATE: 4 OCT (YEAR NOT SPECIFIED)
     Route: 048
     Dates: start: 20111117, end: 20111124
  12. CARVEDILOL [Suspect]
     Dosage: (2.5); THERAPY START DATE: 06 OCT (YEAR NOT SPECIFIED)
     Route: 048
     Dates: start: 20111009, end: 20111110
  13. LANSOPRAZOLE [Suspect]
     Dosage: (15); THERAPY START DATE: 5 OCT (YEAR NOT SPECIFIED)
     Route: 048
     Dates: start: 20111005, end: 20111110
  14. LIVALO [Suspect]
     Indication: DYSLIPIDAEMIA
     Route: 048
     Dates: start: 20111026, end: 20111110
  15. ASPIRIN [Suspect]
     Indication: MYOCARDIAL INFARCTION
     Route: 048
     Dates: start: 20111003, end: 20111110

REACTIONS (8)
  - ARTHROPOD STING [None]
  - ANAPHYLACTIC SHOCK [None]
  - TONSILLITIS [None]
  - INFECTION [None]
  - PYREXIA [None]
  - ORAL CANDIDIASIS [None]
  - PHARYNGEAL ULCERATION [None]
  - GRANULOCYTOPENIA [None]
